FAERS Safety Report 5457865-4 (Version None)
Quarter: 2007Q3

REPORT INFORMATION
  Report Type: 
  Country: None (occurrence: None)
  Receive Date: 20070918
  Receipt Date: 20070913
  Transmission Date: 20080115
  Serious: Yes (Hospitalization, Other)
  Sender: FDA-Public Use
  Company Number: ZA-GILEAD-2007-0013362

PATIENT
  Sex: Male

DRUGS (2)
  1. TRUVADA [Suspect]
     Indication: HIV INFECTION
     Route: 048
     Dates: start: 20070725, end: 20070820
  2. KALETRA [Concomitant]
     Indication: HIV INFECTION
     Dates: start: 20070725, end: 20070820

REACTIONS (2)
  - JAUNDICE [None]
  - RENAL FAILURE ACUTE [None]
